FAERS Safety Report 20589829 (Version 1)
Quarter: 2022Q1

REPORT INFORMATION
  Report Type: Spontaneous
  Country: US (occurrence: None)
  Receive Date: 20220311
  Receipt Date: 20220311
  Transmission Date: 20220423
  Serious: Yes (Other)
  Sender: FDA-Public Use
  Company Number: None

PATIENT
  Age: 57 Year
  Sex: Female
  Weight: 57.15 kg

DRUGS (12)
  1. XOLAIR [Suspect]
     Active Substance: OMALIZUMAB
     Indication: Angioedema
     Route: 058
     Dates: start: 20220228, end: 20220228
  2. ZYRTEC [Concomitant]
     Active Substance: CETIRIZINE HYDROCHLORIDE
  3. PEPCID [Concomitant]
     Active Substance: FAMOTIDINE
  4. ANGIOEDEMA [Concomitant]
  5. URTICARIA EPI-PEN [Concomitant]
  6. PREDNISONE [Concomitant]
     Active Substance: PREDNISONE
  7. BENADRYL [Concomitant]
     Active Substance: DIPHENHYDRAMINE HYDROCHLORIDE
  8. XOLAIR [Concomitant]
     Active Substance: OMALIZUMAB
  9. AUGMENTIN [Concomitant]
     Active Substance: AMOXICILLIN\CLAVULANATE POTASSIUM
  10. VITAMINS [Concomitant]
     Active Substance: VITAMINS
  11. VITAMIN B COMPLEX [Concomitant]
     Active Substance: CYANOCOBALAMIN\DEXPANTHENOL\NIACINAMIDE\PYRIDOXINE HYDROCHLORIDE\RIBOFLAVIN 5^-PHOSPHATE SODIUM\THIA
  12. VITAMIN D3 [Concomitant]
     Active Substance: CHOLECALCIFEROL

REACTIONS (15)
  - Muscle spasms [None]
  - Muscle spasms [None]
  - Myalgia [None]
  - Influenza [None]
  - Fatigue [None]
  - Nausea [None]
  - Ear pain [None]
  - Oropharyngeal pain [None]
  - Nasal congestion [None]
  - Dyspnoea [None]
  - Lower respiratory tract infection [None]
  - Chest discomfort [None]
  - Respiratory tract congestion [None]
  - Mobility decreased [None]
  - Drug hypersensitivity [None]

NARRATIVE: CASE EVENT DATE: 20220305
